FAERS Safety Report 22613693 (Version 1)
Quarter: 2023Q2

REPORT INFORMATION
  Report Type: Spontaneous
  Country: DE (occurrence: DE)
  Receive Date: 20230619
  Receipt Date: 20230619
  Transmission Date: 20230722
  Serious: Yes (Hospitalization, Other)
  Sender: FDA-Public Use
  Company Number: DE-JNJFOC-20230510845

PATIENT
  Age: 85 Year
  Sex: Female
  Weight: 40 kg

DRUGS (20)
  1. DEXAMETHASONE [Suspect]
     Active Substance: DEXAMETHASONE
     Indication: Plasma cell myeloma
     Dosage: 20 MG, QD (CYCLE 1,8,15,22)
     Route: 042
     Dates: start: 20230322
  2. DEXAMETHASONE [Suspect]
     Active Substance: DEXAMETHASONE
     Dosage: 20 MG (CYCLE 1)
     Route: 042
     Dates: start: 20230329
  3. DEXAMETHASONE [Suspect]
     Active Substance: DEXAMETHASONE
     Dosage: 20 MG (CYCLE 1)
     Route: 042
     Dates: start: 20230405
  4. DEXAMETHASONE [Suspect]
     Active Substance: DEXAMETHASONE
     Dosage: 20 MG (CYCLE 1)
     Route: 042
     Dates: start: 20230412
  5. DEXAMETHASONE [Suspect]
     Active Substance: DEXAMETHASONE
     Dosage: 20 MG (CYCLE 2)
     Route: 042
     Dates: start: 20230419
  6. DEXAMETHASONE [Suspect]
     Active Substance: DEXAMETHASONE
     Dosage: 20 MG
     Route: 042
     Dates: start: 20230510
  7. DEXAMETHASONE [Suspect]
     Active Substance: DEXAMETHASONE
     Dosage: 20 MG
     Route: 042
     Dates: start: 20230517
  8. LENALIDOMIDE [Suspect]
     Active Substance: LENALIDOMIDE
     Indication: Product used for unknown indication
     Dosage: 15 MG, QD (CYCLE 1-21)
     Route: 048
     Dates: start: 20230322, end: 20230411
  9. LENALIDOMIDE [Suspect]
     Active Substance: LENALIDOMIDE
     Dosage: 15 MG (CYCLE 2)
     Route: 048
     Dates: start: 20230419, end: 20230424
  10. LENALIDOMIDE [Suspect]
     Active Substance: LENALIDOMIDE
     Dosage: UNK
     Route: 048
     Dates: start: 20230510
  11. DARZALEX [Suspect]
     Active Substance: DARATUMUMAB
     Indication: Plasma cell myeloma
     Dosage: 1800 MG, QD (CYCLE 1, 8, 15, 22)
     Route: 058
     Dates: start: 20230322
  12. DARZALEX [Suspect]
     Active Substance: DARATUMUMAB
     Dosage: 1800 MG (CYCLE 1)
     Route: 058
     Dates: start: 20230329
  13. DARZALEX [Suspect]
     Active Substance: DARATUMUMAB
     Dosage: 1800 MG (CYCLE 1)
     Route: 058
     Dates: start: 20230405
  14. DARZALEX [Suspect]
     Active Substance: DARATUMUMAB
     Dosage: 1800 MG (CYCLE 1)
     Route: 058
     Dates: start: 20230412
  15. DARZALEX [Suspect]
     Active Substance: DARATUMUMAB
     Dosage: 1800 MG (CYCLE 2)
     Route: 058
     Dates: start: 20230419
  16. DARZALEX [Suspect]
     Active Substance: DARATUMUMAB
     Dosage: 1800 MG
     Route: 058
     Dates: start: 20230510
  17. DARZALEX [Suspect]
     Active Substance: DARATUMUMAB
     Dosage: 1800 MG
     Route: 058
     Dates: start: 20230517
  18. BISOPROLOL [Concomitant]
     Active Substance: BISOPROLOL
     Indication: Product used for unknown indication
     Dosage: UNK
     Route: 065
  19. EDOXABAN TOSYLATE [Concomitant]
     Active Substance: EDOXABAN TOSYLATE
     Indication: Product used for unknown indication
     Dosage: UNK
     Route: 065
  20. VALSARTAN [Concomitant]
     Active Substance: VALSARTAN
     Indication: Product used for unknown indication
     Dosage: UNK
     Route: 065

REACTIONS (2)
  - Pancytopenia [Not Recovered/Not Resolved]
  - Leukopenia [Unknown]

NARRATIVE: CASE EVENT DATE: 20230502
